FAERS Safety Report 4915086-5 (Version None)
Quarter: 2006Q1

REPORT INFORMATION
  Report Type: 
  Country: None (occurrence: None)
  Receive Date: 20060217
  Receipt Date: 20060206
  Transmission Date: 20060701
  Serious: Yes (Other)
  Sender: FDA-Public Use
  Company Number: NL-BRISTOL-MYERS SQUIBB COMPANY-13282991

PATIENT
  Age: 22 Year
  Sex: Male

DRUGS (5)
  1. CISPLATIN [Suspect]
     Indication: TESTIS CANCER
  2. ETOPOSIDE [Suspect]
     Indication: TESTIS CANCER
  3. BLEOMYCIN SULFATE [Suspect]
     Indication: TESTIS CANCER
  4. DEXAMETHASONE [Concomitant]
     Indication: PROPHYLAXIS OF NAUSEA AND VOMITING
  5. ONDANSETRON [Concomitant]
     Indication: PROPHYLAXIS OF NAUSEA AND VOMITING

REACTIONS (1)
  - PULMONARY EMBOLISM [None]
